FAERS Safety Report 8055597-X (Version None)
Quarter: 2012Q1

REPORT INFORMATION
  Report Type: 
  Country: None (occurrence: None)
  Receive Date: 20120119
  Receipt Date: 20120113
  Transmission Date: 20120608
  Serious: Yes (Death, Other)
  Sender: FDA-Public Use
  Company Number: BR-JNJFOC-20120107008

PATIENT
  Age: 76 Year
  Sex: Female

DRUGS (4)
  1. REOPRO [Suspect]
     Route: 042
  2. REOPRO [Suspect]
     Indication: PRODUCT USED FOR UNKNOWN INDICATION
     Route: 042
  3. HEPARIN [Concomitant]
     Indication: PRODUCT USED FOR UNKNOWN INDICATION
     Route: 040
  4. NORADRENALIN [Concomitant]
     Indication: PRODUCT USED FOR UNKNOWN INDICATION
     Route: 065

REACTIONS (6)
  - CATHETER SITE HAEMORRHAGE [None]
  - RESPIRATORY DISORDER [None]
  - HAEMODYNAMIC INSTABILITY [None]
  - BLOODY DISCHARGE [None]
  - HAEMORRHAGE [None]
  - CRANIOCEREBRAL INJURY [None]
